FAERS Safety Report 10216846 (Version 3)
Quarter: 2014Q4

REPORT INFORMATION
  Report Type: Spontaneous
  Country: US (occurrence: US)
  Receive Date: 20140604
  Receipt Date: 20141002
  Transmission Date: 20150528
  Serious: Yes (Hospitalization, Other)
  Sender: FDA-Public Use
  Company Number: US-BAYER-2014-080652

PATIENT
  Age: 23 Year
  Sex: Female

DRUGS (1)
  1. MIRENA [Suspect]
     Active Substance: LEVONORGESTREL
     Indication: CONTRACEPTION
     Dosage: 20 MCG/24HR, CONT
     Route: 015
     Dates: start: 20080530, end: 20130815

REACTIONS (19)
  - Vaginal haemorrhage [Not Recovered/Not Resolved]
  - Drug ineffective [None]
  - Uterine perforation [None]
  - Abdominal pain [None]
  - Depression [None]
  - Gastrointestinal injury [Not Recovered/Not Resolved]
  - Injury [None]
  - Back pain [None]
  - Infertility female [Not Recovered/Not Resolved]
  - Rectal haemorrhage [Not Recovered/Not Resolved]
  - Appendicectomy [Not Recovered/Not Resolved]
  - Device misuse [None]
  - Uterine injury [Not Recovered/Not Resolved]
  - Renal pain [Not Recovered/Not Resolved]
  - Pregnancy with contraceptive device [None]
  - Dyspareunia [Not Recovered/Not Resolved]
  - Emotional distress [None]
  - Anxiety [None]
  - Menorrhagia [None]

NARRATIVE: CASE EVENT DATE: 2009
